FAERS Safety Report 16629924 (Version 1)
Quarter: 2019Q3

REPORT INFORMATION
  Report Type: Spontaneous
  Country: US (occurrence: US)
  Receive Date: 20190612
  Receipt Date: 20190612
  Transmission Date: 20191004
  Serious: No
  Sender: FDA-Public Use
  Company Number: None

PATIENT
  Age: 9 Year
  Sex: Male
  Weight: 33.57 kg

DRUGS (2)
  1. DEXMETHYLPHENIDATE HCL 40MG [Suspect]
     Active Substance: DEXMETHYLPHENIDATE HYDROCHLORIDE
     Indication: ATTENTION DEFICIT/HYPERACTIVITY DISORDER
     Route: 048
  2. FOCALIN [Concomitant]
     Active Substance: DEXMETHYLPHENIDATE HYDROCHLORIDE

REACTIONS (4)
  - Agitation [None]
  - Psychomotor hyperactivity [None]
  - Palpitations [None]
  - Therapeutic response changed [None]

NARRATIVE: CASE EVENT DATE: 20190506
